FAERS Safety Report 9366338 (Version 1)
Quarter: 2013Q2

REPORT INFORMATION
  Report Type: Report from Study
  Country: CA (occurrence: CA)
  Receive Date: 20130625
  Receipt Date: 20130625
  Transmission Date: 20140414
  Serious: Yes (Other)
  Sender: FDA-Public Use
  Company Number: CA-JNJFOC-20130614472

PATIENT
  Age: 46 Year
  Sex: Male
  Weight: 49.2 kg

DRUGS (8)
  1. REMICADE [Suspect]
     Indication: CROHN^S DISEASE
     Route: 042
     Dates: start: 20111103
  2. NASONEX [Concomitant]
     Route: 065
  3. ADVAIR [Concomitant]
     Route: 065
  4. ATIVAN [Concomitant]
     Route: 065
  5. ENTOCORT [Concomitant]
     Route: 065
  6. CHOLESTYRAMINE [Concomitant]
     Route: 065
  7. TECTA [Concomitant]
     Route: 065
  8. PENTASA [Concomitant]
     Route: 065

REACTIONS (1)
  - Cholelithiasis [Not Recovered/Not Resolved]
